FAERS Safety Report 20870028 (Version 1)
Quarter: 2022Q2

REPORT INFORMATION
  Report Type: Spontaneous
  Country: US (occurrence: US)
  Receive Date: 20220525
  Receipt Date: 20220525
  Transmission Date: 20220721
  Serious: No
  Sender: FDA-Public Use
  Company Number: US-APOTEX-2022AP003797

PATIENT
  Age: 68 Year
  Sex: Female

DRUGS (3)
  1. METFORMIN [Interacting]
     Active Substance: METFORMIN HYDROCHLORIDE
     Indication: Type 2 diabetes mellitus
     Dosage: 2000-2500 MG/DAY IN TWO DIVIDED DOSES
     Route: 065
  2. SEMAGLUTIDE [Interacting]
     Active Substance: SEMAGLUTIDE
     Indication: Product used for unknown indication
     Dosage: 0.25 MILLIGRAM, Q.WK.
     Route: 065
  3. SEMAGLUTIDE [Interacting]
     Active Substance: SEMAGLUTIDE
     Dosage: 0.5 MILLIGRAM
     Route: 065

REACTIONS (2)
  - Drug interaction [Unknown]
  - Nausea [Recovered/Resolved]
